FAERS Safety Report 7554576-6 (Version None)
Quarter: 2011Q2

REPORT INFORMATION
  Report Type: 
  Country: None (occurrence: None)
  Receive Date: 20110614
  Receipt Date: 20110614
  Transmission Date: 20111010
  Serious: No
  Sender: FDA-Public Use
  Company Number: None

PATIENT
  Age: 73 Year
  Sex: Female

DRUGS (1)
  1. SENSODYNE PRO NAMEL/GLAXO SMITHKLINE [Suspect]
     Indication: SENSITIVITY OF TEETH

REACTIONS (7)
  - GINGIVAL SWELLING [None]
  - HAEMORRHAGE [None]
  - GINGIVAL PAIN [None]
  - TONGUE INJURY [None]
  - GLOSSODYNIA [None]
  - OROPHARYNGEAL PAIN [None]
  - GINGIVAL RECESSION [None]
